FAERS Safety Report 4497629-1 (Version None)
Quarter: 2004Q4

REPORT INFORMATION
  Report Type: 
  Country: None (occurrence: None)
  Receive Date: 20041105
  Receipt Date: 20041004
  Transmission Date: 20050328
  Serious: Yes (Hospitalization, Other)
  Sender: FDA-Public Use
  Company Number: US-JNJFOC-20041002070

PATIENT
  Sex: Female
  Weight: 72.58 kg

DRUGS (5)
  1. ORTHO TRI-CYCLEN LO [Suspect]
     Indication: CONTRACEPTION
     Route: 049
     Dates: end: 20040801
  2. ORTHO TRI-CYCLEN LO [Suspect]
     Route: 049
     Dates: end: 20040801
  3. ORTHO EVRA [Suspect]
     Indication: CONTRACEPTION
     Dates: start: 20040801
  4. ORTHO EVRA [Suspect]
     Dates: start: 20040801
  5. IRON PILLS [Concomitant]

REACTIONS (2)
  - SELF-MEDICATION [None]
  - VAGINAL HAEMORRHAGE [None]
